FAERS Safety Report 24391682 (Version 1)
Quarter: 2024Q4

REPORT INFORMATION
  Report Type: Spontaneous
  Country: US (occurrence: US)
  Receive Date: 20241003
  Receipt Date: 20241003
  Transmission Date: 20250114
  Serious: Yes (Hospitalization, Other)
  Sender: BRISTOL MYERS SQUIBB
  Company Number: US-BRISTOL-MYERS SQUIBB COMPANY-2024-154207

PATIENT
  Age: 75 Year
  Sex: Male

DRUGS (3)
  1. POMALIDOMIDE [Suspect]
     Active Substance: POMALIDOMIDE
     Indication: Primary amyloidosis
  2. DEXAMETHASONE [Concomitant]
     Active Substance: DEXAMETHASONE
     Indication: Primary amyloidosis
  3. DARATUMUMAB [Concomitant]
     Active Substance: DARATUMUMAB
     Indication: Primary amyloidosis

REACTIONS (2)
  - Eosinophilic pneumonia [Unknown]
  - Off label use [Unknown]
